FAERS Safety Report 8407814-1 (Version None)
Quarter: 2012Q2

REPORT INFORMATION
  Report Type: 
  Country: None (occurrence: None)
  Receive Date: 20120604
  Receipt Date: 20120523
  Transmission Date: 20120825
  Serious: Yes (Hospitalization, Other)
  Sender: FDA-Public Use
  Company Number: US-BRISTOL-MYERS SQUIBB COMPANY-16625436

PATIENT
  Age: 63 Year
  Sex: Female
  Weight: 113 kg

DRUGS (3)
  1. LYRICA [Suspect]
     Indication: DIABETIC NEUROPATHY
     Dosage: CAPS FROM MAR12,2 PER 1 DAY
     Route: 048
     Dates: start: 20120201
  2. COUMADIN [Suspect]
     Route: 042
     Dates: start: 20120301
  3. AMITRIPTYLINE HCL [Suspect]
     Indication: PAIN
     Dates: start: 20120301

REACTIONS (2)
  - ATRIAL FIBRILLATION [None]
  - ABSCESS [None]
